FAERS Safety Report 24968072 (Version 1)
Quarter: 2025Q1

REPORT INFORMATION
  Report Type: Spontaneous
  Country: US (occurrence: US)
  Receive Date: 20250214
  Receipt Date: 20250214
  Transmission Date: 20250409
  Serious: No
  Sender: AVEO PHARMACEUTICALS
  Company Number: US-AVEO PHARMACEUTICALS, INC.-2024-AVEO-US000585

PATIENT

DRUGS (23)
  1. FOTIVDA [Suspect]
     Active Substance: TIVOZANIB HYDROCHLORIDE
     Indication: Renal cell carcinoma
     Dosage: 1.34 MG, DAILY FOR 21 DAYS WITH 7 DAYS OFF (28-DAY CYCLE)
     Route: 048
     Dates: start: 202407, end: 2024
  2. TYLENOL [Concomitant]
     Active Substance: ACETAMINOPHEN
  3. ALBUTEROL SULFATE [Concomitant]
     Active Substance: ALBUTEROL SULFATE
  4. ASPIRIN [Concomitant]
     Active Substance: ASPIRIN
  5. ATORVASTATIN [Concomitant]
     Active Substance: ATORVASTATIN
  6. BREO ELLIPTA [Concomitant]
     Active Substance: FLUTICASONE FUROATE\VILANTEROL TRIFENATATE
  7. CEFADROXIL [Concomitant]
     Active Substance: CEFADROXIL
  8. DEXAMETHASONE [Concomitant]
     Active Substance: DEXAMETHASONE
  9. Dulcolax [Concomitant]
  10. GEMTESA [Concomitant]
     Active Substance: VIBEGRON
  11. GLIMEPIRIDE [Concomitant]
     Active Substance: GLIMEPIRIDE
  12. HYDROCORTISONE [Concomitant]
     Active Substance: HYDROCORTISONE
  13. LASIX [Concomitant]
     Active Substance: FUROSEMIDE
  14. LEVOTHYROXINE SODIUM [Concomitant]
     Active Substance: LEVOTHYROXINE SODIUM
  15. LOMOTIL [Concomitant]
     Active Substance: ATROPINE SULFATE\DIPHENOXYLATE HYDROCHLORIDE
  16. METFORMIN HYDROCHLORIDE [Concomitant]
     Active Substance: METFORMIN HYDROCHLORIDE
  17. METOPROLOL SUCCINATE [Concomitant]
     Active Substance: METOPROLOL SUCCINATE
  18. PERCOCET [Concomitant]
     Active Substance: ACETAMINOPHEN\OXYCODONE HYDROCHLORIDE
  19. PREDNISONE [Concomitant]
     Active Substance: PREDNISONE
  20. RITALIN [Concomitant]
     Active Substance: METHYLPHENIDATE HYDROCHLORIDE
  21. PANTOPRAZOLE [Concomitant]
     Active Substance: PANTOPRAZOLE
  22. VALSARTAN [Concomitant]
     Active Substance: VALSARTAN
  23. XGEVA [Concomitant]
     Active Substance: DENOSUMAB

REACTIONS (3)
  - Fatigue [Unknown]
  - Confusional state [Unknown]
  - Adverse drug reaction [Unknown]

NARRATIVE: CASE EVENT DATE: 20240101
